FAERS Safety Report 26204201 (Version 1)
Quarter: 2025Q4

REPORT INFORMATION
  Report Type: Report from Study
  Country: CN (occurrence: CN)
  Receive Date: 20251226
  Receipt Date: 20251226
  Transmission Date: 20260118
  Serious: Yes (Other)
  Sender: GILEAD
  Company Number: CN-GILEAD-2025-0741520

PATIENT
  Age: 62 Year
  Sex: Female

DRUGS (4)
  1. SACITUZUMAB GOVITECAN-HZIY [Suspect]
     Active Substance: SACITUZUMAB GOVITECAN-HZIY
     Indication: Breast cancer
     Dosage: 720 MG
     Route: 041
     Dates: start: 20251031
  2. SACITUZUMAB GOVITECAN-HZIY [Suspect]
     Active Substance: SACITUZUMAB GOVITECAN-HZIY
     Dosage: 720 MG
     Route: 041
     Dates: start: 20251108
  3. SACITUZUMAB GOVITECAN-HZIY [Suspect]
     Active Substance: SACITUZUMAB GOVITECAN-HZIY
     Dosage: 540 MG
     Route: 041
     Dates: start: 20251120
  4. SACITUZUMAB GOVITECAN-HZIY [Suspect]
     Active Substance: SACITUZUMAB GOVITECAN-HZIY
     Dosage: 720 MG
     Route: 041
     Dates: start: 20251212

REACTIONS (5)
  - Agranulocytosis [Unknown]
  - Breast cancer metastatic [Unknown]
  - Chest wall mass [Unknown]
  - Pruritus [Unknown]
  - Pyrexia [Unknown]
